FAERS Safety Report 15008171 (Version 2)
Quarter: 2018Q3

REPORT INFORMATION
  Report Type: Spontaneous
  Country: JP (occurrence: JP)
  Receive Date: 20180613
  Receipt Date: 20180706
  Transmission Date: 20181010
  Serious: Yes (Death)
  Sender: FDA-Public Use
  Company Number: JP-EISAI MEDICAL RESEARCH-EC-2018-041210

PATIENT
  Sex: Male

DRUGS (1)
  1. LENVIMA [Suspect]
     Active Substance: LENVATINIB
     Indication: HEPATIC CANCER
     Route: 048
     Dates: start: 20180328, end: 20180518

REACTIONS (1)
  - Malignant neoplasm progression [Fatal]

NARRATIVE: CASE EVENT DATE: 20180520
